FAERS Safety Report 21200070 (Version 1)
Quarter: 2022Q3

REPORT INFORMATION
  Report Type: Spontaneous
  Country: US (occurrence: None)
  Receive Date: 20220811
  Receipt Date: 20220811
  Transmission Date: 20221027
  Serious: Yes (Death, Hospitalization)
  Sender: FDA-Public Use
  Company Number: US-ROCHE-3158858

PATIENT
  Age: 89 Year
  Sex: Female
  Weight: 56.296 kg

DRUGS (2)
  1. ACTIVASE [Suspect]
     Active Substance: ALTEPLASE
     Indication: Ischaemic stroke
     Dosage: BOLUS DOSE
     Route: 065
  2. ELIQUIS [Concomitant]
     Active Substance: APIXABAN
     Indication: Atrial fibrillation
     Dates: end: 20220629

REACTIONS (4)
  - Haemorrhage [Fatal]
  - Fall [Unknown]
  - Liver function test abnormal [Unknown]
  - Cerebellar stroke [Unknown]

NARRATIVE: CASE EVENT DATE: 20220701
